FAERS Safety Report 10250313 (Version 3)
Quarter: 2014Q4

REPORT INFORMATION
  Report Type: Spontaneous
  Country: US (occurrence: US)
  Receive Date: 20140620
  Receipt Date: 20141112
  Transmission Date: 20150528
  Serious: Yes (Hospitalization)
  Sender: FDA-Public Use
  Company Number: US-JNJFOC-20140613752

PATIENT
  Age: 66 Year
  Sex: Male

DRUGS (9)
  1. LASIX [Concomitant]
     Active Substance: FUROSEMIDE
  2. OXYMETAZOLINE [Concomitant]
     Active Substance: OXYMETAZOLINE
     Route: 045
  3. DIGOXIN. [Concomitant]
     Active Substance: DIGOXIN
  4. HYDROCODONE [Concomitant]
     Active Substance: HYDROCODONE
  5. SERTRALINE [Concomitant]
     Active Substance: SERTRALINE HYDROCHLORIDE
  6. BENADRYL [Concomitant]
     Active Substance: DIPHENHYDRAMINE HYDROCHLORIDE
  7. IMBRUVICA [Suspect]
     Active Substance: IBRUTINIB
     Indication: CHRONIC LYMPHOCYTIC LEUKAEMIA
     Route: 048
     Dates: start: 20140221, end: 20140429
  8. SIMVASTATIN. [Concomitant]
     Active Substance: SIMVASTATIN
  9. COREG [Concomitant]
     Active Substance: CARVEDILOL

REACTIONS (8)
  - Pulmonary oedema [Unknown]
  - Pulmonary hypertension [Unknown]
  - Cardiac failure congestive [Unknown]
  - Respiratory failure [Unknown]
  - Mitral valve incompetence [Unknown]
  - Pneumonia [Unknown]
  - Atrial fibrillation [Unknown]
  - Chronic obstructive pulmonary disease [Unknown]

NARRATIVE: CASE EVENT DATE: 20140429
